FAERS Safety Report 4906296-1 (Version None)
Quarter: 2006Q1

REPORT INFORMATION
  Report Type: 
  Country: None (occurrence: None)
  Receive Date: 20060209
  Receipt Date: 20060202
  Transmission Date: 20060701
  Serious: Yes (Hospitalization)
  Sender: FDA-Public Use
  Company Number: US-ABBOTT-06P-163-0323939-00

PATIENT
  Sex: Male
  Weight: 74.91 kg

DRUGS (4)
  1. VICODIN [Suspect]
     Indication: PAIN
     Route: 048
     Dates: start: 20060120, end: 20060126
  2. ATENOLOL [Concomitant]
     Indication: BLOOD PRESSURE
     Route: 048
     Dates: end: 20060131
  3. DYAZIDE [Concomitant]
     Indication: BLOOD PRESSURE
     Dosage: 75/50MG
     Route: 048
     Dates: end: 20060131
  4. AMITRIPTYLINE HCL [Concomitant]
     Indication: INSOMNIA
     Route: 048
     Dates: start: 20060201

REACTIONS (7)
  - ASTHENIA [None]
  - BLOOD PRESSURE DECREASED [None]
  - DECREASED APPETITE [None]
  - DYSARTHRIA [None]
  - DYSPNOEA [None]
  - GAIT DISTURBANCE [None]
  - HALLUCINATION [None]
